FAERS Safety Report 7472634-1 (Version None)
Quarter: 2011Q2

REPORT INFORMATION
  Report Type: 
  Country: None (occurrence: None)
  Receive Date: 20110511
  Receipt Date: 20110502
  Transmission Date: 20111010
  Serious: Yes (Hospitalization)
  Sender: FDA-Public Use
  Company Number: US-GENZYME-CLOF-1001511

PATIENT
  Sex: Female
  Weight: 70.7 kg

DRUGS (14)
  1. VINORELBINE [Suspect]
     Indication: ACUTE MYELOID LEUKAEMIA
     Dosage: UNK
     Route: 065
     Dates: start: 20110301, end: 20110301
  2. LEVOFLOXACIN [Concomitant]
     Indication: PROPHYLAXIS
     Dosage: 500 MG, QD
     Route: 048
     Dates: start: 20110312, end: 20110321
  3. NEURONTIN [Concomitant]
     Indication: NEUROPATHY PERIPHERAL
     Dosage: 900 MG, TID
     Route: 048
     Dates: start: 20100701
  4. DEXAMETHASONE [Suspect]
     Indication: ACUTE MYELOID LEUKAEMIA
     Dosage: 26 MG X 3
     Route: 065
     Dates: start: 20110307, end: 20110301
  5. POSACONAZOLE [Concomitant]
     Indication: ORAL CANDIDIASIS
     Dosage: 400 MG, BID
     Route: 048
     Dates: start: 20110312, end: 20110327
  6. THIOTEPA [Suspect]
     Indication: ACUTE MYELOID LEUKAEMIA
     Dosage: 27 MG, ONCE
     Route: 065
     Dates: start: 20110306, end: 20110306
  7. BACTRIM [Concomitant]
     Indication: PROPHYLAXIS
     Dosage: 160 MG, BID ON MTW
     Route: 048
     Dates: start: 20110307
  8. LO/OVRAL [Concomitant]
     Indication: PROPHYLAXIS
     Dosage: 1 TABLET QD
     Route: 048
     Dates: start: 20110307
  9. TOPOTECAN [Suspect]
     Indication: ACUTE MYELOID LEUKAEMIA
     Dosage: 1.8 MG, QDX5
     Route: 065
     Dates: start: 20110304, end: 20110309
  10. LOVENOX [Concomitant]
     Indication: VENOUS THROMBOSIS
     Dosage: 60 MG, UNK
     Route: 058
     Dates: start: 20110307, end: 20110321
  11. FILGRASTIM [Concomitant]
     Indication: NEUTROPENIA
     Dosage: 480 MCG, QD
     Route: 058
     Dates: start: 20110312, end: 20110416
  12. CLOLAR [Suspect]
     Indication: ACUTE MYELOID LEUKAEMIA
     Dosage: 55 MG, QDX5
     Route: 042
     Dates: start: 20110307, end: 20110311
  13. NYSTATIN [Concomitant]
     Indication: ORAL CANDIDIASIS
     Dosage: 10 ML, QID
     Route: 048
     Dates: start: 20110304, end: 20110419
  14. FLAGYL [Concomitant]
     Indication: PROPHYLAXIS
     Dosage: 500 MG, TID
     Route: 048
     Dates: start: 20110312, end: 20110426

REACTIONS (5)
  - ABDOMINAL PAIN [None]
  - DECREASED APPETITE [None]
  - FEBRILE NEUTROPENIA [None]
  - NEUTROPENIC INFECTION [None]
  - LEFT VENTRICULAR DYSFUNCTION [None]
